FAERS Safety Report 13661137 (Version 1)
Quarter: 2017Q2

REPORT INFORMATION
  Report Type: Report from Study
  Country: US (occurrence: US)
  Receive Date: 20170616
  Receipt Date: 20170616
  Transmission Date: 20170830
  Serious: No
  Sender: FDA-Public Use
  Company Number: US-US WORLDMEDS, LLC-USW201704-000567

PATIENT
  Sex: Female

DRUGS (15)
  1. LEXAPRO [Concomitant]
     Active Substance: ESCITALOPRAM OXALATE
  2. TRAZODONE [Concomitant]
     Active Substance: TRAZODONE HYDROCHLORIDE
     Indication: SLEEP DISORDER
  3. AMANTATINE [Concomitant]
  4. SINEMET [Concomitant]
     Active Substance: CARBIDOPA\LEVODOPA
  5. TIGAN [Concomitant]
     Active Substance: TRIMETHOBENZAMIDE HYDROCHLORIDE
  6. RYTARY [Concomitant]
     Active Substance: CARBIDOPA\LEVODOPA
  7. VALIUM [Concomitant]
     Active Substance: DIAZEPAM
     Indication: ANXIETY
  8. APOKYN [Suspect]
     Active Substance: APOMORPHINE HYDROCHLORIDE
     Indication: PARKINSON^S DISEASE
     Route: 058
     Dates: start: 201411
  9. TRAMADOL. [Concomitant]
     Active Substance: TRAMADOL
  10. CARBIDOPA. [Concomitant]
     Active Substance: CARBIDOPA
     Indication: NAUSEA
  11. CLONOPIN [Concomitant]
     Active Substance: CLONAZEPAM
  12. ZANAFLEX [Concomitant]
     Active Substance: TIZANIDINE HYDROCHLORIDE
  13. EXELON [Concomitant]
     Active Substance: RIVASTIGMINE TARTRATE
  14. TOPAMAX [Suspect]
     Active Substance: TOPIRAMATE
  15. NEUPRO [Concomitant]
     Active Substance: ROTIGOTINE

REACTIONS (2)
  - Hallucination [Unknown]
  - Migraine [Unknown]
